FAERS Safety Report 8212832-2 (Version None)
Quarter: 2012Q1

REPORT INFORMATION
  Report Type: 
  Country: None (occurrence: None)
  Receive Date: 20120315
  Receipt Date: 20120312
  Transmission Date: 20120608
  Serious: Yes (Death, Other)
  Sender: FDA-Public Use
  Company Number: PHHY2012LV020706

PATIENT
  Age: 50 Year
  Sex: Male

DRUGS (3)
  1. MITOXANTRONE [Concomitant]
  2. DEXAMETHASONE [Concomitant]
  3. FLUDARABINE PHOSPHATE [Suspect]

REACTIONS (10)
  - PARESIS [None]
  - GLIOMA [None]
  - DEATH [None]
  - JC VIRUS INFECTION [None]
  - ASTHENIA [None]
  - DYSARTHRIA [None]
  - TREMOR [None]
  - PROGRESSIVE MULTIFOCAL LEUKOENCEPHALOPATHY [None]
  - SPEECH DISORDER [None]
  - CLUMSINESS [None]
